FAERS Safety Report 18647357 (Version 1)
Quarter: 2020Q4

REPORT INFORMATION
  Report Type: Report from Study
  Country: US (occurrence: US)
  Receive Date: 20201222
  Receipt Date: 20201222
  Transmission Date: 20210114
  Serious: No
  Sender: FDA-Public Use
  Company Number: US-JNJFOC-20200901165

PATIENT
  Age: 68 Year
  Sex: Female
  Weight: 98.52 kg

DRUGS (8)
  1. ORENITRAM [Suspect]
     Active Substance: TREPROSTINIL
     Route: 048
  2. ORENITRAM [Suspect]
     Active Substance: TREPROSTINIL
     Route: 048
  3. OPSUMIT [Concomitant]
     Active Substance: MACITENTAN
  4. TREPROSTINIL. [Suspect]
     Active Substance: TREPROSTINIL
     Indication: PULMONARY ARTERIAL HYPERTENSION
     Dosage: 0.25 MG AND 2.5?MG
     Route: 048
     Dates: start: 20190612
  5. ORENITRAM [Suspect]
     Active Substance: TREPROSTINIL
     Indication: PULMONARY ARTERIAL HYPERTENSION
     Dosage: 1 MG, 0.25 MG, 2.5 MG, 5 MG AND 0.125 MG. ?0.25 MG AND 2.5 MG AND CURRENT DOSE WAS REPORTED AS 3.25
     Route: 048
     Dates: start: 20191206
  6. ADEMPAS [Concomitant]
     Active Substance: RIOCIGUAT
  7. TREPROSTINIL. [Suspect]
     Active Substance: TREPROSTINIL
     Indication: PULMONARY ARTERIAL HYPERTENSION
     Route: 048
     Dates: start: 20190612
  8. IMODIUM [Suspect]
     Active Substance: LOPERAMIDE HYDROCHLORIDE
     Indication: DIARRHOEA
     Route: 065

REACTIONS (4)
  - Headache [Unknown]
  - Diarrhoea [Unknown]
  - Constipation [Unknown]
  - Abdominal discomfort [Unknown]
